FAERS Safety Report 21676999 (Version 2)
Quarter: 2023Q1

REPORT INFORMATION
  Report Type: Spontaneous
  Country: US (occurrence: US)
  Receive Date: 20221203
  Receipt Date: 20230315
  Transmission Date: 20230417
  Serious: No
  Sender: FDA-Public Use
  Company Number: US-JNJFOC-20221136916

PATIENT
  Age: 21 Year
  Sex: Female
  Weight: 77.180 kg

DRUGS (1)
  1. TREMFYA [Suspect]
     Active Substance: GUSELKUMAB
     Indication: Psoriasis
     Route: 058
     Dates: start: 202208

REACTIONS (5)
  - Device issue [Unknown]
  - Needle issue [Unknown]
  - Product dose omission issue [Unknown]
  - Complication associated with device [Unknown]
  - Device occlusion [Unknown]
